FAERS Safety Report 12548988 (Version 1)
Quarter: 2016Q3

REPORT INFORMATION
  Report Type: Spontaneous
  Country: US (occurrence: US)
  Receive Date: 20160712
  Receipt Date: 20160712
  Transmission Date: 20161109
  Serious: Yes (Death, Hospitalization, Other)
  Sender: FDA-Public Use
  Company Number: US-FRI-1000085966

PATIENT
  Age: 82 Year
  Sex: Male

DRUGS (1)
  1. NAMZARIC [Suspect]
     Active Substance: DONEPEZIL HYDROCHLORIDE\MEMANTINE HYDROCHLORIDE
     Indication: DEMENTIA ALZHEIMER^S TYPE
     Dosage: 28MG/10MG
     Route: 048
     Dates: start: 201601, end: 20160618

REACTIONS (3)
  - Fall [Fatal]
  - Cerebral haemorrhage [Fatal]
  - Hip fracture [Fatal]

NARRATIVE: CASE EVENT DATE: 20160618
